FAERS Safety Report 23049578 (Version 1)
Quarter: 2023Q4

REPORT INFORMATION
  Report Type: Other
  Country: None (occurrence: US)
  Receive Date: 20231010
  Receipt Date: 20231010
  Transmission Date: 20240110
  Serious: Yes (Hospitalization)
  Sender: FDA-Public Use
  Company Number: US-OrBion Pharmaceuticals Private Limited-2146843

PATIENT
  Age: 58 Year
  Sex: Female

DRUGS (1)
  1. VENLAFAXINE HYDROCHLORIDE [Suspect]
     Active Substance: VENLAFAXINE HYDROCHLORIDE
     Route: 065

REACTIONS (11)
  - Cardiogenic shock [Unknown]
  - Ejection fraction decreased [Unknown]
  - Tachycardia [Unknown]
  - Generalised tonic-clonic seizure [Unknown]
  - Electrocardiogram QRS complex prolonged [Unknown]
  - Hypotension [Unknown]
  - Acute kidney injury [Unknown]
  - Ischaemic hepatitis [Unknown]
  - Ventricular hypokinesia [Unknown]
  - Altered state of consciousness [Unknown]
  - Overdose [Unknown]
